FAERS Safety Report 5100683-7 (Version None)
Quarter: 2006Q3

REPORT INFORMATION
  Report Type: 
  Country: None (occurrence: None)
  Receive Date: 20060906
  Receipt Date: 20060824
  Transmission Date: 20061208
  Serious: Yes (Other)
  Sender: FDA-Public Use
  Company Number: 2006089967

PATIENT
  Age: 68 Year
  Sex: Female
  Weight: 61 kg

DRUGS (8)
  1. AROMASIN [Suspect]
     Indication: BREAST CANCER METASTATIC
     Dosage: 25 MG (25 MG, DAILY), ORAL
     Route: 048
     Dates: start: 20060502, end: 20060530
  2. CLODRONATE DISODIUM (CLODRONATE DISODIUM) [Suspect]
     Indication: BREAST CANCER METASTATIC
     Dosage: 1600 MG (1600 MG, DAILY), ORAL
     Route: 048
     Dates: start: 20060502, end: 20060530
  3. METOCLOPRAMIDE [Concomitant]
  4. RANITIDINE [Concomitant]
  5. OXAZEPAM [Concomitant]
  6. ATENOLOL [Concomitant]
  7. ACETAMINOPHEN W/ CODEINE [Concomitant]
  8. OXYCODONE HCL [Concomitant]

REACTIONS (1)
  - ALVEOLITIS ALLERGIC [None]
